FAERS Safety Report 6369361-0 (Version None)
Quarter: 2009Q3

REPORT INFORMATION
  Report Type: 
  Country: None (occurrence: None)
  Receive Date: 20090917
  Receipt Date: 20090909
  Transmission Date: 20100115
  Serious: Yes (Other)
  Sender: FDA-Public Use
  Company Number: CHPA2009US18434

PATIENT
  Age: 50 Year
  Sex: Female
  Weight: 63.5 kg

DRUGS (3)
  1. MAALOX ADV MAXIMUM STRENGTH ANTACID/ANTIGAS (NCH)(MAGNESIUM HYDROXIDE, [Suspect]
     Indication: GASTROOESOPHAGEAL REFLUX DISEASE
     Dosage: 3 TSP, ONCE/SINGLE, ORAL
     Route: 048
     Dates: start: 20090601, end: 20090601
  2. PRILOSEC [Concomitant]
  3. EXTRA STRENGTH TYLENOL [Concomitant]

REACTIONS (7)
  - AMNESIA [None]
  - CHILLS [None]
  - CONVULSION [None]
  - DRUG HYPERSENSITIVITY [None]
  - DYSPNOEA [None]
  - LOSS OF CONSCIOUSNESS [None]
  - NERVOUSNESS [None]
